FAERS Safety Report 21977051 (Version 1)
Quarter: 2023Q1

REPORT INFORMATION
  Report Type: Report from Study
  Country: US (occurrence: US)
  Receive Date: 20230210
  Receipt Date: 20230210
  Transmission Date: 20230417
  Serious: Yes (Hospitalization, Other)
  Sender: FDA-Public Use
  Company Number: US-ABBVIE-4302201

PATIENT
  Sex: Female
  Weight: 81.646 kg

DRUGS (2)
  1. DEPAKOTE ER [Suspect]
     Active Substance: DIVALPROEX SODIUM
     Indication: Bipolar II disorder
     Route: 048
     Dates: start: 2005, end: 2008
  2. TOPAMAX [Suspect]
     Active Substance: TOPIRAMATE
     Indication: Bipolar II disorder
     Route: 048
     Dates: start: 2006, end: 2006

REACTIONS (17)
  - Tooth loss [Recovered/Resolved]
  - Deafness [Not Recovered/Not Resolved]
  - Weight increased [Recovered/Resolved]
  - Circumstance or information capable of leading to medication error [Recovered/Resolved]
  - Emphysema [Not Recovered/Not Resolved]
  - Road traffic accident [Recovered/Resolved]
  - Post-traumatic stress disorder [Recovering/Resolving]
  - Abscess oral [Recovered/Resolved]
  - Asthma [Not Recovered/Not Resolved]
  - Tinnitus [Not Recovered/Not Resolved]
  - Anger [Not Recovered/Not Resolved]
  - Concussion [Recovered/Resolved]
  - Implantation complication [Recovered/Resolved]
  - Victim of abuse [Recovering/Resolving]
  - Hip arthroplasty [Unknown]
  - Ear deformity acquired [Unknown]
  - Tooth abscess [Recovered/Resolved]

NARRATIVE: CASE EVENT DATE: 20050101
